FAERS Safety Report 10064454 (Version 1)
Quarter: 2014Q2

REPORT INFORMATION
  Report Type: Spontaneous
  Country: US (occurrence: None)
  Receive Date: 20140407
  Receipt Date: 20140407
  Transmission Date: 20141212
  Serious: Yes (Other)
  Sender: FDA-Public Use
  Company Number: None

PATIENT
  Age: 68 Year
  Sex: Male
  Weight: 79.83 kg

DRUGS (1)
  1. VYVANSE [Suspect]
     Indication: BIPOLAR I DISORDER
     Dosage: TAKEN BY MOUTH
     Dates: start: 20140213, end: 20140405

REACTIONS (2)
  - Tardive dyskinesia [None]
  - Movement disorder [None]
